FAERS Safety Report 7248857-3 (Version None)
Quarter: 2011Q1

REPORT INFORMATION
  Report Type: 
  Country: None (occurrence: None)
  Receive Date: 20110105
  Receipt Date: 20101216
  Transmission Date: 20110831
  Serious: Yes (Other)
  Sender: FDA-Public Use
  Company Number: OMX-2010-00151

PATIENT

DRUGS (2)
  1. EVICEL [Suspect]
     Indication: TISSUE SEALING
     Dates: start: 20101001, end: 20101001
  2. APPLICATOR [Concomitant]

REACTIONS (2)
  - EYE OPERATION COMPLICATION [None]
  - OFF LABEL USE [None]
